FAERS Safety Report 4971533-4 (Version None)
Quarter: 2006Q2

REPORT INFORMATION
  Report Type: 
  Country: None (occurrence: None)
  Receive Date: 20060406
  Receipt Date: 20060324
  Transmission Date: 20061013
  Serious: Yes (Other)
  Sender: FDA-Public Use
  Company Number: S06-CAN-00913-01

PATIENT
  Age: 23 Month
  Sex: Male

DRUGS (1)
  1. TIAZAC [Suspect]
     Dosage: 240 MG ONCE PO
     Route: 048
     Dates: start: 20060323, end: 20060323

REACTIONS (3)
  - ACCIDENTAL DRUG INTAKE BY CHILD [None]
  - ACCIDENTAL OVERDOSE [None]
  - BLOOD PRESSURE DECREASED [None]
